FAERS Safety Report 5507899-6 (Version None)
Quarter: 2007Q4

REPORT INFORMATION
  Report Type: 
  Country: None (occurrence: None)
  Receive Date: 20071106
  Receipt Date: 20071025
  Transmission Date: 20080405
  Serious: Yes (Hospitalization)
  Sender: FDA-Public Use
  Company Number: JP-PFIZER INC-2007092466

PATIENT
  Sex: Female

DRUGS (5)
  1. CELECOX [Suspect]
     Indication: OSTEOARTHRITIS
     Dosage: DAILY DOSE:100MG
  2. CELECOX [Suspect]
     Indication: HEADACHE
  3. SERMION [Concomitant]
     Indication: CEREBRAL CIRCULATORY FAILURE
  4. BASEN [Concomitant]
     Indication: DIABETES MELLITUS
     Dosage: DAILY DOSE:.9MG
     Route: 048
     Dates: start: 20010604
  5. LUVOX [Concomitant]
     Indication: NEUROSIS
     Dosage: DAILY DOSE:150MG
     Route: 048

REACTIONS (1)
  - AORTIC DISSECTION [None]
